FAERS Safety Report 7914122-1 (Version None)
Quarter: 2011Q4

REPORT INFORMATION
  Report Type: 
  Country: None (occurrence: None)
  Receive Date: 20111115
  Receipt Date: 20111115
  Transmission Date: 20120403
  Serious: Yes (Other)
  Sender: FDA-Public Use
  Company Number: US-PFIZER INC-2011276246

PATIENT
  Age: 80 Year
  Sex: Male

DRUGS (8)
  1. GEODON [Suspect]
     Indication: DEMENTIA ALZHEIMER'S TYPE
     Dosage: 10 MG, 1X/DAY
     Route: 030
     Dates: start: 20110101, end: 20110101
  2. NAMENDA [Concomitant]
     Dosage: UNK
  3. GEODON [Suspect]
     Indication: PSYCHOTIC BEHAVIOUR
     Dosage: 60 MG, DAILY
     Route: 030
     Dates: start: 20110101, end: 20110101
  4. GEODON [Suspect]
     Dosage: 60 MG, 1X/DAY
     Route: 048
     Dates: start: 20110101, end: 20110101
  5. ARICEPT [Concomitant]
     Dosage: UNK
  6. NEURONTIN [Concomitant]
     Dosage: UNK
  7. GEODON [Suspect]
     Dosage: DAILY
     Route: 030
     Dates: start: 20110101, end: 20110101
  8. DEPAKOTE [Concomitant]
     Dosage: UNK

REACTIONS (1)
  - OXYGEN SATURATION DECREASED [None]
